FAERS Safety Report 16011004 (Version 1)
Quarter: 2019Q1

REPORT INFORMATION
  Report Type: Spontaneous
  Country: FR (occurrence: FR)
  Receive Date: 20190227
  Receipt Date: 20190227
  Transmission Date: 20190418
  Serious: Yes (Other)
  Sender: FDA-Public Use
  Company Number: FR-ACCORD-109266

PATIENT
  Age: 70 Year
  Sex: Female
  Weight: 60 kg

DRUGS (11)
  1. ORACILLINE [Concomitant]
     Active Substance: PENICILLIN V
     Indication: SPLENECTOMY
     Route: 048
     Dates: start: 201710
  2. COVERSYL [Concomitant]
     Active Substance: PERINDOPRIL
     Indication: HYPERTENSION
     Dosage: STRENGTH 2.5 MG,
     Route: 048
  3. METHYLPREDNISOLONE MYLAN [Suspect]
     Active Substance: METHYLPREDNISOLONE
     Indication: PROPHYLAXIS OF NAUSEA AND VOMITING
     Route: 042
     Dates: start: 20180301, end: 20180302
  4. CALCIUM LEVOFOLINATE ZENTIVA [Suspect]
     Active Substance: LEVOLEUCOVORIN CALCIUM
     Indication: BLOOD FOLATE DECREASED
     Route: 042
     Dates: start: 20180301, end: 20180302
  5. DACARBAZINE MEDAC [Suspect]
     Active Substance: DACARBAZINE
     Indication: PANCREATIC NEOPLASM
     Route: 042
     Dates: start: 20180301, end: 20180302
  6. FLUOROURACIL ACCORD [Suspect]
     Active Substance: FLUOROURACIL
     Indication: PANCREATIC NEOPLASM
     Dosage: 1280 MG TAKEN FROM 01-MAR-2018 TO 02-MAR-2018
     Route: 042
     Dates: start: 20180301, end: 20180301
  7. MEDROL [Suspect]
     Active Substance: METHYLPREDNISOLONE
     Indication: PROPHYLAXIS OF NAUSEA AND VOMITING
     Dosage: STRENGTH 16 MG,SCORED TABLET
     Route: 048
     Dates: start: 20180303, end: 20180305
  8. EUROBIOL [Concomitant]
     Indication: PANCREATECTOMY
     Route: 048
     Dates: start: 201710
  9. EMEND [Suspect]
     Active Substance: APREPITANT
     Indication: PROPHYLAXIS OF NAUSEA AND VOMITING
     Dosage: STRENGTH 125 MG, 80 MG TAKEN FROM 02-MAR-2018 TO 03-MAR-2018,125 MG FROM 01-MAR-2018 TO 01-MAR-2018
     Route: 048
     Dates: start: 20180301, end: 20180303
  10. ONDANSETRON ACCORD [Suspect]
     Active Substance: ONDANSETRON
     Indication: PROPHYLAXIS OF NAUSEA AND VOMITING
     Route: 042
     Dates: start: 20180301, end: 20180302
  11. APREPITANT. [Suspect]
     Active Substance: APREPITANT
     Indication: PRODUCT USED FOR UNKNOWN INDICATION
     Route: 048
     Dates: start: 20180301, end: 20180303

REACTIONS (4)
  - Eye pain [Recovered/Resolved]
  - Photophobia [Recovered/Resolved]
  - Vision blurred [Recovered/Resolved]
  - Off label use [Unknown]

NARRATIVE: CASE EVENT DATE: 201803
